FAERS Safety Report 4772793-5 (Version None)
Quarter: 2005Q3

REPORT INFORMATION
  Report Type: 
  Country: None (occurrence: None)
  Receive Date: 20050915
  Receipt Date: 20050915
  Transmission Date: 20060218
  Serious: Yes (Hospitalization)
  Sender: FDA-Public Use
  Company Number: None

PATIENT
  Age: 80 Year
  Sex: Female

DRUGS (9)
  1. WARFARIN SODIUM [Suspect]
     Dosage: 5MG PO DAILY; CHRONIC
     Route: 048
  2. ALTACE [Concomitant]
  3. CALCIUM GLUCONATE [Concomitant]
  4. HUMALIN [Concomitant]
  5. SYNTHROID [Concomitant]
  6. LIPITOR [Concomitant]
  7. PEPCID [Concomitant]
  8. LOPID [Concomitant]
  9. M.V.I. [Concomitant]

REACTIONS (7)
  - ANAEMIA [None]
  - COLONIC POLYP [None]
  - DIVERTICULUM [None]
  - HAEMATOCHEZIA [None]
  - HAEMORRHAGE [None]
  - LOWER GASTROINTESTINAL HAEMORRHAGE [None]
  - RECTAL HAEMORRHAGE [None]
